FAERS Safety Report 9736998 (Version 1)
Quarter: 2013Q4

REPORT INFORMATION
  Report Type: Spontaneous
  Country: US (occurrence: US)
  Receive Date: 20131206
  Receipt Date: 20131206
  Transmission Date: 20140711
  Serious: Yes (Hospitalization, Other)
  Sender: FDA-Public Use
  Company Number: US-ELI_LILLY_AND_COMPANY-US201311008978

PATIENT
  Age: 53 Year
  Sex: Male

DRUGS (1)
  1. HUMALOG LISPRO [Suspect]
     Indication: TYPE 2 DIABETES MELLITUS
     Dosage: UNK, PRN
     Route: 065
     Dates: start: 2007

REACTIONS (3)
  - Peripheral embolism [Unknown]
  - Febrile nonhaemolytic transfusion reaction [Recovered/Resolved]
  - Blood glucose increased [Recovered/Resolved]
